FAERS Safety Report 5637347-7 (Version None)
Quarter: 2008Q1

REPORT INFORMATION
  Report Type: 
  Country: None (occurrence: None)
  Receive Date: 20080225
  Receipt Date: 20080213
  Transmission Date: 20080703
  Serious: Yes (Other)
  Sender: FDA-Public Use
  Company Number: US-PFIZER INC-2007049682

PATIENT
  Sex: Male
  Weight: 72.7 kg

DRUGS (2)
  1. CHANTIX [Suspect]
     Indication: EX-SMOKER
     Route: 048
     Dates: start: 20070601, end: 20070613
  2. ANTIBIOTICS [Concomitant]

REACTIONS (2)
  - ABNORMAL BEHAVIOUR [None]
  - ANXIETY [None]
